FAERS Safety Report 8403389-1 (Version None)
Quarter: 2012Q2

REPORT INFORMATION
  Report Type: 
  Country: None (occurrence: None)
  Receive Date: 20120601
  Receipt Date: 20120523
  Transmission Date: 20120825
  Serious: Yes (Other)
  Sender: FDA-Public Use
  Company Number: US-ABBOTT-12P-163-0938530-00

PATIENT
  Age: 53 Year
  Sex: Female

DRUGS (4)
  1. LATANOPROST [Concomitant]
     Indication: SENSATION OF PRESSURE
     Dosage: 1 DROP IN BOTH EYES DAILY
  2. COMBIGAN [Concomitant]
     Indication: GLAUCOMA
     Dosage: 1 DROP DAILY IN BOTH EYES
  3. HUMIRA [Suspect]
     Indication: CROHN'S DISEASE
  4. METOPROLOL TARTRATE [Concomitant]
     Indication: HYPERTENSION
     Route: 048

REACTIONS (3)
  - BLINDNESS UNILATERAL [None]
  - EYE HAEMORRHAGE [None]
  - INTRAOCULAR PRESSURE INCREASED [None]
